FAERS Safety Report 9595672 (Version 1)
Quarter: 2013Q4

REPORT INFORMATION
  Report Type: Spontaneous
  Country: JP (occurrence: JP)
  Receive Date: 20131004
  Receipt Date: 20131004
  Transmission Date: 20140711
  Serious: Yes (Other)
  Sender: FDA-Public Use
  Company Number: PHHY2013JP110389

PATIENT
  Sex: 0

DRUGS (2)
  1. TASIGNA [Suspect]
     Indication: CHRONIC MYELOID LEUKAEMIA
     Dosage: 4 DF, DAILY
     Route: 048
  2. TASIGNA [Suspect]
     Dosage: 3 DF, DAILY
     Route: 048

REACTIONS (1)
  - Electrocardiogram QT prolonged [Unknown]
